FAERS Safety Report 15280247 (Version 1)
Quarter: 2018Q3

REPORT INFORMATION
  Report Type: Spontaneous
  Country: GB (occurrence: GB)
  Receive Date: 20180815
  Receipt Date: 20180815
  Transmission Date: 20181010
  Serious: Yes (Other)
  Sender: FDA-Public Use
  Company Number: GB-PFIZER INC-2018322456

PATIENT
  Age: 67 Year
  Sex: Male
  Weight: 113 kg

DRUGS (15)
  1. IBUPROFEN. [Concomitant]
     Active Substance: IBUPROFEN
     Dosage: 1 DF, 1 APPLICATION
     Dates: start: 20180424, end: 20180425
  2. COCODAMOL [Concomitant]
     Active Substance: ACETAMINOPHEN\CODEINE PHOSPHATE
     Dosage: 1?2 TABLET
     Dates: start: 20180424, end: 20180518
  3. SODIUM CHLORIDE. [Concomitant]
     Active Substance: SODIUM CHLORIDE
     Dosage: 5 ML
     Dates: start: 20180424, end: 20180425
  4. TAMSULOSIN HYDROCHLORIDE. [Concomitant]
     Active Substance: TAMSULOSIN HYDROCHLORIDE
     Dosage: 1 DF
     Dates: start: 20160907, end: 20180511
  5. LANSOPRAZOLE. [Concomitant]
     Active Substance: LANSOPRAZOLE
     Dosage: 1 DF
     Dates: start: 20160907, end: 20180511
  6. FLUCLOXACILLIN [Concomitant]
     Active Substance: FLUCLOXACILLIN
     Dosage: 4 DF, 1X/DAY
     Dates: start: 20180420, end: 20180427
  7. BISOPROLOL [Concomitant]
     Active Substance: BISOPROLOL
     Dosage: 1 DF, 1X/DAY
     Dates: start: 20180621
  8. PARACETAMOL [Concomitant]
     Active Substance: ACETAMINOPHEN
     Dosage: 1 G
     Dates: start: 20180424, end: 20180425
  9. ALGINATE DE SODIUM/BICARBONATE DE SODIUM [Concomitant]
     Dosage: 10 ML
     Dates: start: 20160907, end: 20180511
  10. WARFARIN SODIUM. [Concomitant]
     Active Substance: WARFARIN SODIUM
     Dosage: 1 DF, AS DIRECTED BY YELLOW BOOK
     Dates: start: 20160907
  11. SILDENAFIL. [Concomitant]
     Active Substance: SILDENAFIL
     Dosage: 1 DF TO BE TAKEN 1 HOUR BEFORE SEXUAL ACTIVITY
     Dates: start: 20170111
  12. ATORVASTATIN [Suspect]
     Active Substance: ATORVASTATIN
     Dosage: UNK
     Dates: start: 20180301
  13. COLCHICINE. [Concomitant]
     Active Substance: COLCHICINE
     Indication: GOUT
     Dosage: 1 DF FOR ACUTE ATTACKS OF GOUT TAKE ONE TABLET THREE...
     Dates: start: 20180514, end: 20180524
  14. ENALAPRIL [Concomitant]
     Active Substance: ENALAPRIL
     Dosage: 2 DF
     Dates: start: 20160907
  15. FENBID [Concomitant]
     Active Substance: IBUPROFEN
     Dosage: APPLY TO THE AFFECTED AREA(S) UP TO THREE TIMES...
     Dates: start: 20180420, end: 20180518

REACTIONS (1)
  - Muscle haemorrhage [Recovering/Resolving]

NARRATIVE: CASE EVENT DATE: 20180425
